FAERS Safety Report 14417845 (Version 2)
Quarter: 2018Q1

REPORT INFORMATION
  Report Type: Report from Study
  Country: US (occurrence: US)
  Receive Date: 20180122
  Receipt Date: 20180220
  Transmission Date: 20180509
  Serious: Yes (Hospitalization)
  Sender: FDA-Public Use
  Company Number: US-JNJFOC-20151115457

PATIENT
  Age: 79 Year
  Sex: Female
  Weight: 61 kg

DRUGS (7)
  1. IMBRUVICA [Suspect]
     Active Substance: IBRUTINIB
     Indication: WALDENSTROM^S MACROGLOBULINAEMIA
     Route: 048
  2. DIGOXIN. [Concomitant]
     Active Substance: DIGOXIN
     Indication: ATRIAL FIBRILLATION
     Dosage: UNK
  3. IMBRUVICA [Suspect]
     Active Substance: IBRUTINIB
     Indication: WALDENSTROM^S MACROGLOBULINAEMIA
     Route: 048
     Dates: start: 20151027
  4. TRAMADOL. [Concomitant]
     Active Substance: TRAMADOL
     Indication: PAIN
     Dosage: UNK
  5. TOCOPHEROL [Concomitant]
     Active Substance: TOCOPHEROL
  6. FISH OIL [Concomitant]
     Active Substance: FISH OIL
  7. LOVENOX [Suspect]
     Active Substance: ENOXAPARIN SODIUM
     Indication: THROMBOSIS

REACTIONS (29)
  - Hypotension [Unknown]
  - Tooth disorder [Not Recovered/Not Resolved]
  - Headache [Unknown]
  - Muscle spasms [Unknown]
  - Chills [Unknown]
  - Confusional state [Unknown]
  - Dizziness [Unknown]
  - Nausea [Unknown]
  - Oedema peripheral [Not Recovered/Not Resolved]
  - Cystitis [Unknown]
  - Tooth abscess [Not Recovered/Not Resolved]
  - Hypoacusis [Unknown]
  - Arthralgia [Unknown]
  - Anger [Not Recovered/Not Resolved]
  - Mood altered [Not Recovered/Not Resolved]
  - Presyncope [Unknown]
  - Back pain [Unknown]
  - Anxiety [Not Recovered/Not Resolved]
  - Abdominal distension [Unknown]
  - Dysgeusia [Unknown]
  - Contusion [Not Recovered/Not Resolved]
  - Pleurisy [Not Recovered/Not Resolved]
  - Abdominal mass [Unknown]
  - Epistaxis [Recovered/Resolved]
  - Hordeolum [Unknown]
  - Hypothyroidism [Unknown]
  - Tremor [Unknown]
  - Atrial fibrillation [Unknown]
  - Urine output decreased [Unknown]

NARRATIVE: CASE EVENT DATE: 2015
